FAERS Safety Report 7170738-4 (Version None)
Quarter: 2010Q4

REPORT INFORMATION
  Report Type: 
  Country: None (occurrence: None)
  Receive Date: 20101203
  Receipt Date: 20101124
  Transmission Date: 20110411
  Serious: Yes (Disabling)
  Sender: FDA-Public Use
  Company Number: 2010EU004858

PATIENT
  Age: 42 Year
  Sex: Male
  Weight: 110 kg

DRUGS (4)
  1. PROGRAF [Suspect]
     Indication: LIVER TRANSPLANT
     Dosage: 0.5MG, UID/QD, ORAL
     Route: 048
  2. ALLOPURINOL [Concomitant]
  3. ATACAND [Concomitant]
  4. PANTOPRAZOLE SODIUM [Concomitant]

REACTIONS (1)
  - OSTEOARTHRITIS [None]
